FAERS Safety Report 8458826-3 (Version None)
Quarter: 2012Q2

REPORT INFORMATION
  Report Type: 
  Country: None (occurrence: None)
  Receive Date: 20120622
  Receipt Date: 20120618
  Transmission Date: 20120825
  Serious: Yes (Disabling, Other)
  Sender: FDA-Public Use
  Company Number: US-PFIZER INC-2012146478

PATIENT
  Sex: Female
  Weight: 68 kg

DRUGS (6)
  1. MICRONASE [Concomitant]
     Indication: DIABETES MELLITUS
     Dosage: 2.5 MG, 2X/DAY
  2. METFORMIN [Concomitant]
     Indication: DIABETES MELLITUS
     Dosage: 500 MG, 2X/DAY
  3. LYRICA [Suspect]
     Indication: TRIGEMINAL NEURALGIA
     Dosage: 75 MG, 2X/DAY
     Route: 048
  4. EPITOL [Suspect]
     Dosage: 200 MG, TWO TIMES OR THREE TIMES A DAY
     Route: 048
     Dates: start: 20120101
  5. EPITOL [Suspect]
     Dosage: 400 MG, 3X/DAY
     Route: 048
     Dates: start: 20120301
  6. EPITOL [Suspect]
     Indication: TRIGEMINAL NEURALGIA
     Dosage: 200 MG, 4X/DAY
     Route: 048

REACTIONS (4)
  - APHAGIA [None]
  - NERVOUS SYSTEM DISORDER [None]
  - ABASIA [None]
  - MUTISM [None]
